FAERS Safety Report 6856115-1 (Version None)
Quarter: 2010Q3

REPORT INFORMATION
  Report Type: 
  Country: None (occurrence: None)
  Receive Date: 20100719
  Receipt Date: 20100705
  Transmission Date: 20110219
  Serious: Yes (Hospitalization, Other)
  Sender: FDA-Public Use
  Company Number: PHHY2010JP33455

PATIENT
  Sex: Female
  Weight: 43 kg

DRUGS (5)
  1. AFINITOR [Suspect]
     Indication: METASTATIC RENAL CELL CARCINOMA
     Dosage: 10 MG, DAILY
     Route: 048
     Dates: start: 20100421, end: 20100518
  2. AFINITOR [Suspect]
     Dosage: 5 MG/DAY
     Route: 048
     Dates: start: 20100608, end: 20100702
  3. MUCOSTA [Concomitant]
     Indication: PROPHYLAXIS
     Dosage: 300 MG, UNK
     Route: 048
     Dates: start: 20070901
  4. THYRADIN [Concomitant]
     Indication: PROPHYLAXIS
     Dosage: 50 UG, UNK
     Route: 048
     Dates: start: 20080801
  5. HYPEN [Concomitant]
     Indication: METASTATIC RENAL CELL CARCINOMA
     Dosage: 200 MG, UNK
     Route: 048
     Dates: start: 20100406

REACTIONS (4)
  - CELL MARKER INCREASED [None]
  - COUGH [None]
  - INTERSTITIAL LUNG DISEASE [None]
  - PNEUMONIA STAPHYLOCOCCAL [None]
